FAERS Safety Report 6758964-7 (Version None)
Quarter: 2010Q2

REPORT INFORMATION
  Report Type: 
  Country: None (occurrence: None)
  Receive Date: 20100607
  Receipt Date: 20100528
  Transmission Date: 20101027
  Serious: Yes (Hospitalization)
  Sender: FDA-Public Use
  Company Number: IT-JNJFOC-20100508287

PATIENT
  Age: 52 Year
  Sex: Male

DRUGS (4)
  1. REMICADE [Suspect]
     Indication: COLITIS ULCERATIVE
     Route: 042
     Dates: start: 20100420, end: 20100420
  2. DELTACORTENE [Concomitant]
     Indication: COLITIS ULCERATIVE
     Dosage: FOR 10 DAYS
     Route: 048
  3. PARIET [Concomitant]
     Indication: PROPHYLAXIS AGAINST GASTROINTESTINAL ULCER
     Dosage: FOR 10 DAYS
     Route: 048
  4. TPN [Concomitant]
     Dosage: FOR 30 DAYS

REACTIONS (3)
  - ANAEMIA [None]
  - CYTOMEGALOVIRUS INFECTION [None]
  - THROMBOCYTOPENIA [None]
